FAERS Safety Report 15040840 (Version 1)
Quarter: 2018Q2

REPORT INFORMATION
  Report Type: Spontaneous
  Country: US (occurrence: US)
  Receive Date: 20180620
  Receipt Date: 20180620
  Transmission Date: 20180711
  Serious: Yes (Death, Other)
  Sender: FDA-Public Use
  Company Number: US-BRISTOL-MYERS SQUIBB COMPANY-BMS-2018-057092

PATIENT
  Sex: Female
  Weight: 66.6 kg

DRUGS (1)
  1. OPDIVO [Suspect]
     Active Substance: NIVOLUMAB
     Indication: ANAL CANCER
     Dosage: 260 MG, UNK
     Route: 042
     Dates: start: 2017

REACTIONS (2)
  - Death [Fatal]
  - Product use in unapproved indication [Unknown]
